FAERS Safety Report 10057603 (Version 1)
Quarter: 2014Q2

REPORT INFORMATION
  Report Type: Spontaneous
  Country: KR (occurrence: KR)
  Receive Date: 20140404
  Receipt Date: 20140404
  Transmission Date: 20141212
  Serious: Yes (Other)
  Sender: FDA-Public Use
  Company Number: KR-PFIZER INC-2014088005

PATIENT
  Sex: Male

DRUGS (4)
  1. VIAGRA [Suspect]
     Dosage: SPLIT 100 MG INTO 3 PIECES, AS NEEDED
     Route: 048
  2. VIAGRA [Suspect]
     Dosage: SPLIT 100 MG INTO HALF, AS NEEDED
     Route: 048
  3. VIAGRA [Suspect]
     Dosage: 100 MG, AS NEEDED
     Route: 048
  4. VIAGRA [Suspect]
     Dosage: 250 MG, UNK
     Route: 048
     Dates: start: 20140323

REACTIONS (4)
  - Alcohol induced persisting dementia [Unknown]
  - Faecal incontinence [Unknown]
  - Drug ineffective [Unknown]
  - Migraine [Unknown]
